FAERS Safety Report 13671131 (Version 1)
Quarter: 2017Q2

REPORT INFORMATION
  Report Type: Spontaneous
  Country: US (occurrence: US)
  Receive Date: 20170620
  Receipt Date: 20170620
  Transmission Date: 20170830
  Serious: Yes (Other)
  Sender: FDA-Public Use
  Company Number: US-ELI_LILLY_AND_COMPANY-US201706004902

PATIENT
  Sex: Male
  Weight: 93 kg

DRUGS (2)
  1. PROZAC [Suspect]
     Active Substance: FLUOXETINE HYDROCHLORIDE
     Indication: DEPRESSION
     Dosage: 40 MG, DAILY
     Route: 048
  2. CHANTIX [Concomitant]
     Active Substance: VARENICLINE TARTRATE
     Indication: EX-TOBACCO USER
     Dosage: UNK UNK, BID
     Route: 065
     Dates: start: 2008

REACTIONS (4)
  - Hip fracture [Unknown]
  - Emotional disorder [Unknown]
  - Drug ineffective [Unknown]
  - Arthralgia [Unknown]
